FAERS Safety Report 9458640 (Version 1)
Quarter: 2013Q3

REPORT INFORMATION
  Report Type: Spontaneous
  Country: US (occurrence: US)
  Receive Date: 20130814
  Receipt Date: 20130814
  Transmission Date: 20140515
  Serious: Yes (Hospitalization, Other)
  Sender: FDA-Public Use
  Company Number: US-ACTAVIS-2013-13807

PATIENT
  Age: 62 Year
  Sex: Male

DRUGS (3)
  1. TRAMADOL HYDROCHLORIDE [Suspect]
     Indication: MUSCULOSKELETAL PAIN
     Dosage: 50 MG, TID
     Route: 065
  2. CITALOPRAM HYDROBROMIDE (WATSON LABORATORIES) [Interacting]
     Indication: MAJOR DEPRESSION
     Dosage: 40 MG, BID
     Route: 065
  3. BUPROPION HYDROCHLORIDE (WATSON LABORATORIES) [Interacting]
     Indication: MAJOR DEPRESSION
     Dosage: 150 MG, BID
     Route: 065

REACTIONS (2)
  - Serotonin syndrome [Recovered/Resolved]
  - Drug interaction [Unknown]
